FAERS Safety Report 4836514-X (Version None)
Quarter: 2005Q4

REPORT INFORMATION
  Report Type: 
  Country: None (occurrence: None)
  Receive Date: 20051123
  Receipt Date: 20051116
  Transmission Date: 20060501
  Serious: Yes (Hospitalization)
  Sender: FDA-Public Use
  Company Number: JP-GLAXOSMITHKLINE-B0400723A

PATIENT
  Sex: Female

DRUGS (6)
  1. ZIAGEN [Suspect]
     Indication: HIV INFECTION
     Dosage: 300MG TWICE PER DAY
     Route: 048
     Dates: start: 20040303
  2. VIDEX EC [Suspect]
     Indication: HIV INFECTION
     Dosage: 250MG PER DAY
     Route: 048
     Dates: start: 20021002
  3. KALETRA [Suspect]
     Indication: HIV INFECTION
     Route: 048
     Dates: start: 20021002
  4. ZERIT [Suspect]
     Indication: HIV INFECTION
     Route: 048
     Dates: start: 20031119, end: 20040302
  5. EPIVIR [Concomitant]
     Indication: HIV INFECTION
     Route: 048
     Dates: start: 20021002, end: 20030331
  6. EPIVIR [Concomitant]
     Dosage: 150MG TWICE PER DAY
     Route: 048
     Dates: start: 20030401

REACTIONS (1)
  - HERPES SIMPLEX [None]
